FAERS Safety Report 14287605 (Version 2)
Quarter: 2018Q1

REPORT INFORMATION
  Report Type: Report from Study
  Country: US (occurrence: US)
  Receive Date: 20171215
  Receipt Date: 20180105
  Transmission Date: 20180509
  Serious: Yes (Hospitalization, Other)
  Sender: FDA-Public Use
  Company Number: US-AMGEN-USASL2017183181

PATIENT
  Age: 62 Year
  Sex: Female
  Weight: 76.19 kg

DRUGS (20)
  1. REPATHA [Suspect]
     Active Substance: EVOLOCUMAB
     Indication: HYPERCHOLESTEROLAEMIA
     Dosage: 140 MG, Q2WK
     Route: 058
     Dates: start: 201609
  2. NITROSTAT [Concomitant]
     Active Substance: NITROGLYCERIN
     Indication: CHEST PAIN
     Dosage: 0.4 MG, Q5MIN
     Route: 060
  3. NORCO [Concomitant]
     Active Substance: ACETAMINOPHEN\HYDROCODONE BITARTRATE
     Indication: PAIN
     Dosage: 10-325 MG, AS NECESSARY
     Route: 048
  4. AFRIN [Concomitant]
     Active Substance: OXYMETAZOLINE
     Indication: NASAL CONGESTION
     Dosage: 2 SPRAYS BY EACH NARE, BID
  5. REPATHA [Suspect]
     Active Substance: EVOLOCUMAB
     Indication: ARTERIOSCLEROSIS
     Dosage: 420 MG, QMO
     Route: 058
     Dates: end: 201703
  6. PLAVIX [Concomitant]
     Active Substance: CLOPIDOGREL BISULFATE
     Dosage: 75 MG, QD
  7. ATIVAN [Concomitant]
     Active Substance: LORAZEPAM
     Indication: ANXIETY
     Dosage: 0.5 MG, QD
     Route: 048
  8. ZOLOFT [Concomitant]
     Active Substance: SERTRALINE HYDROCHLORIDE
     Dosage: 12.5 MG, QD
     Route: 048
  9. DEMEROL [Concomitant]
     Active Substance: MEPERIDINE HYDROCHLORIDE
     Dosage: 50 MG, UNK
  10. ZOFRAN [Concomitant]
     Active Substance: ONDANSETRON HYDROCHLORIDE
     Dosage: 4 MG, AS NECESSARY
     Route: 048
  11. DILAUDID [Concomitant]
     Active Substance: HYDROMORPHONE HYDROCHLORIDE
     Indication: PAIN
     Dosage: 2-4 MG, AS NECESSARY
  12. RANEXA [Concomitant]
     Active Substance: RANOLAZINE
     Indication: HEADACHE
     Dosage: 500 MG, BID
  13. CRESTOR [Concomitant]
     Active Substance: ROSUVASTATIN CALCIUM
     Dosage: 5 MG TAKE EVERY MONDAY AND THURSDAY, UNK
  14. ZYRTEC [Concomitant]
     Active Substance: CETIRIZINE HYDROCHLORIDE
     Indication: HYPERSENSITIVITY
     Dosage: 10 MG, QD
     Route: 048
  15. TOPROL XL [Concomitant]
     Active Substance: METOPROLOL SUCCINATE
     Dosage: 12.5 MG, QD
     Route: 048
  16. OCEAN MILK SANGO CORAL CALCIUM [Concomitant]
     Indication: NASAL CONGESTION
     Dosage: 1 SPRAY, UNK
  17. FISH OIL W/OMEGA-3 FATTY ACIDS [Concomitant]
     Active Substance: FISH OIL\OMEGA-3 FATTY ACIDS
     Dosage: 2 G, QD
     Route: 048
  18. ECOTRIN [Concomitant]
     Active Substance: ASPIRIN
     Dosage: 81 MG, QD
     Route: 048
  19. COENZYME Q10 [Concomitant]
     Active Substance: UBIDECARENONE
     Dosage: 30 MG, TID
     Route: 048
  20. DRISDOL [Concomitant]
     Active Substance: ERGOCALCIFEROL
     Dosage: 4000 ML, QD
     Route: 048

REACTIONS (19)
  - Application site rash [Unknown]
  - Spinal cord disorder [Unknown]
  - Drug hypersensitivity [Unknown]
  - Dyspnoea [Unknown]
  - Injection site erythema [Recovered/Resolved]
  - Immune-mediated adverse reaction [Recovered/Resolved]
  - Lip swelling [Recovered/Resolved]
  - Rash generalised [Recovered/Resolved]
  - Blister [Unknown]
  - Influenza like illness [Recovered/Resolved]
  - Breast cellulitis [Unknown]
  - Catheterisation cardiac [Unknown]
  - Swollen tongue [Unknown]
  - Urticaria [Unknown]
  - Sepsis [Recovered/Resolved]
  - Eye pruritus [Recovered/Resolved]
  - Staphylococcal infection [Unknown]
  - Dysphagia [Unknown]
  - Sinusitis [Unknown]

NARRATIVE: CASE EVENT DATE: 20170201
